FAERS Safety Report 14239328 (Version 6)
Quarter: 2018Q4

REPORT INFORMATION
  Report Type: Spontaneous
  Country: IT (occurrence: IT)
  Receive Date: 20171130
  Receipt Date: 20181012
  Transmission Date: 20190204
  Serious: Yes (Death, Hospitalization)
  Sender: FDA-Public Use
  Company Number: IT-JNJFOC-20171132064

PATIENT
  Age: 78 Year
  Sex: Male
  Weight: 70 kg

DRUGS (22)
  1. OXYCONTIN [Suspect]
     Active Substance: OXYCODONE HYDROCHLORIDE
     Indication: PAIN IN EXTREMITY
     Dosage: 20 MG A DAY
     Route: 048
     Dates: start: 20170803
  2. DELTACORTENE [Concomitant]
     Active Substance: PREDNISONE
     Indication: PAIN IN EXTREMITY
     Route: 048
     Dates: start: 201709
  3. OXYCONTIN [Suspect]
     Active Substance: OXYCODONE HYDROCHLORIDE
     Indication: ARTHRALGIA
     Dosage: 20 MG A DAY
     Route: 048
     Dates: start: 20170803
  4. FENTANYL CITRATE. [Concomitant]
     Active Substance: FENTANYL CITRATE
     Indication: PAIN IN EXTREMITY
     Dosage: AS REQUIRED
     Route: 048
     Dates: start: 201709
  5. ORAMORPH [Concomitant]
     Active Substance: MORPHINE SULFATE
     Indication: PAIN IN EXTREMITY
     Dosage: AS REQUIRED
     Route: 048
     Dates: start: 20170726
  6. MATRIFEN [Suspect]
     Active Substance: FENTANYL
     Indication: ARTHRALGIA
     Dosage: 50 MCG EVERY 1 HOUR (EVERY 3 DAYS) CYCLIC
     Route: 062
     Dates: start: 20170726
  7. ENANTONE LP [Concomitant]
     Active Substance: LEUPROLIDE ACETATE
     Indication: PROSTATE CANCER
     Route: 030
     Dates: start: 201211
  8. ZOMETA [Concomitant]
     Active Substance: ZOLEDRONIC ACID
     Indication: PROSTATE CANCER
     Route: 042
     Dates: start: 20111108, end: 20170727
  9. ORAMORPH [Concomitant]
     Active Substance: MORPHINE SULFATE
     Indication: ARTHRALGIA
     Dosage: AS REQUIRED
     Route: 048
     Dates: start: 20170726
  10. VELLOFENT [Concomitant]
     Indication: PAIN IN EXTREMITY
     Dosage: AS REQUIRED
     Route: 048
  11. ENZALUTAMIDE [Suspect]
     Active Substance: ENZALUTAMIDE
     Indication: PROSTATE CANCER
     Route: 048
     Dates: start: 20151220
  12. TACHIPIRINA [Concomitant]
     Active Substance: ACETAMINOPHEN
     Indication: PAIN IN EXTREMITY
     Dosage: 2000 MG A DAY
     Route: 048
     Dates: start: 20170901, end: 20171003
  13. TACHIPIRINA [Concomitant]
     Active Substance: ACETAMINOPHEN
     Indication: PAIN IN EXTREMITY
     Dosage: 2000 MG A DAY
     Route: 048
     Dates: start: 20170901, end: 20171003
  14. CALCIUM GLUCONATE. [Concomitant]
     Active Substance: CALCIUM GLUCONATE
     Indication: HYPOCALCAEMIA
     Dosage: CUMULATIVE DOSE TO FIRST REACTION 10.5 DOSE
     Route: 048
     Dates: start: 20170823, end: 20170919
  15. ABIRATERONE ACETATE. [Suspect]
     Active Substance: ABIRATERONE ACETATE
     Indication: PROSTATE CANCER
     Route: 048
     Dates: start: 20151220
  16. PREDNISONE. [Suspect]
     Active Substance: PREDNISONE
     Indication: PROSTATE CANCER
     Route: 048
     Dates: start: 20151220
  17. LYRICA [Concomitant]
     Active Substance: PREGABALIN
     Indication: PAIN IN EXTREMITY
     Dosage: 150 MG A DAY
     Route: 048
     Dates: start: 200107
  18. SOLDESAM [Concomitant]
     Active Substance: DEXAMETHASONE
     Indication: PAIN IN EXTREMITY
     Route: 048
     Dates: start: 20170802
  19. DELTACORTENE [Concomitant]
     Active Substance: PREDNISONE
     Indication: ARTHRALGIA
     Route: 048
     Dates: start: 201709
  20. SOLDESAM [Concomitant]
     Active Substance: DEXAMETHASONE
     Indication: ARTHRALGIA
     Route: 048
     Dates: start: 20170802
  21. MATRIFEN [Suspect]
     Active Substance: FENTANYL
     Indication: PAIN IN EXTREMITY
     Dosage: 50 MCG EVERY 1 HOUR (EVERY 3 DAYS) CYCLIC
     Route: 062
     Dates: start: 20170726
  22. FENTANYL CITRATE. [Concomitant]
     Active Substance: FENTANYL CITRATE
     Indication: PAIN IN EXTREMITY
     Dosage: AS REQUIRED
     Route: 048
     Dates: start: 201709

REACTIONS (4)
  - Decreased appetite [Recovered/Resolved]
  - Pyrexia [Fatal]
  - Weight decreased [Recovered/Resolved]
  - Prostate cancer [Fatal]

NARRATIVE: CASE EVENT DATE: 20170912
